FAERS Safety Report 11595554 (Version 2)
Quarter: 2015Q4

REPORT INFORMATION
  Report Type: Spontaneous
  Country: US (occurrence: US)
  Receive Date: 20151006
  Receipt Date: 20151118
  Transmission Date: 20160304
  Serious: Yes (Death, Hospitalization, Other)
  Sender: FDA-Public Use
  Company Number: US-PFIZER INC-2015317574

PATIENT
  Age: 80 Year
  Sex: Male
  Weight: 93 kg

DRUGS (13)
  1. COREG [Concomitant]
     Active Substance: CARVEDILOL
     Indication: CARDIAC DISORDER
     Dosage: 6.25 MG, 2X/DAY
     Route: 048
     Dates: start: 201010
  2. SUTENT [Suspect]
     Active Substance: SUNITINIB MALATE
     Indication: RENAL CANCER METASTATIC
     Dosage: 25 MG, CYCLIC (DAILY)
     Route: 048
     Dates: start: 20150505, end: 20150917
  3. METFORMIN [Concomitant]
     Active Substance: METFORMIN HYDROCHLORIDE
     Indication: DIABETES MELLITUS
     Dosage: 500 MG, 2X/DAY
     Route: 048
     Dates: start: 201408
  4. COREG [Concomitant]
     Active Substance: CARVEDILOL
     Dosage: UNK
     Dates: start: 201010
  5. LASIX [Concomitant]
     Active Substance: FUROSEMIDE
     Dosage: 20MG  ONE EVERY OTHER DAY
     Dates: start: 201501
  6. COUMADIN [Concomitant]
     Active Substance: WARFARIN SODIUM
     Indication: BLOOD DISORDER
     Dosage: 3MG TABLETS  EITHER 2 A DAY OR 3 A DAY
  7. SIMVASTATIN. [Concomitant]
     Active Substance: SIMVASTATIN
     Dosage: UNK
     Dates: start: 201010
  8. SIMVASTATIN. [Concomitant]
     Active Substance: SIMVASTATIN
     Indication: BLOOD CHOLESTEROL INCREASED
     Dosage: 20 MG AT BEDTIME
     Route: 048
     Dates: start: 201010
  9. O2 [Concomitant]
     Dosage: 24 HOURS PER DAY 2 UNITS
     Dates: start: 20150212
  10. O2 [Concomitant]
     Dosage: UNK
     Dates: start: 20150202
  11. COUMADIN [Concomitant]
     Active Substance: WARFARIN SODIUM
     Dosage: UNK
     Dates: start: 20141002
  12. METFORMIN [Concomitant]
     Active Substance: METFORMIN HYDROCHLORIDE
     Dosage: UNK
     Dates: start: 201408
  13. LASIX [Concomitant]
     Active Substance: FUROSEMIDE
     Dosage: UNK
     Dates: start: 201501

REACTIONS (11)
  - Nausea [Unknown]
  - Laboratory test abnormal [Unknown]
  - Loss of consciousness [Unknown]
  - Dizziness [Unknown]
  - Myocardial infarction [Fatal]
  - Retching [Unknown]
  - Fall [Unknown]
  - Dysgeusia [Unknown]
  - Ventricular tachycardia [Fatal]
  - Asthenia [Not Recovered/Not Resolved]
  - Glossodynia [Not Recovered/Not Resolved]

NARRATIVE: CASE EVENT DATE: 20150915
